FAERS Safety Report 13599098 (Version 6)
Quarter: 2017Q4

REPORT INFORMATION
  Report Type: Report from Study
  Country: US (occurrence: US)
  Receive Date: 20170531
  Receipt Date: 20171121
  Transmission Date: 20180320
  Serious: Yes (Other)
  Sender: FDA-Public Use
  Company Number: US-ALEXION PHARMACEUTICALS INC.-A201705940

PATIENT
  Age: 60 Year
  Sex: Female

DRUGS (3)
  1. SOLIRIS [Suspect]
     Active Substance: ECULIZUMAB
     Dosage: UNK
     Route: 065
     Dates: start: 20171104
  2. SOLIRIS [Suspect]
     Active Substance: ECULIZUMAB
     Dosage: 900 MG, UNK
     Route: 042
     Dates: start: 20131014, end: 20170706
  3. SOLIRIS [Suspect]
     Active Substance: ECULIZUMAB
     Indication: PAROXYSMAL NOCTURNAL HAEMOGLOBINURIA
     Dosage: 900 MG, Q2W
     Route: 042
     Dates: start: 20130904, end: 20170616

REACTIONS (12)
  - Chills [Unknown]
  - Headache [Unknown]
  - Blood lactate dehydrogenase increased [Unknown]
  - Dyspnoea [Unknown]
  - Palpitations [Unknown]
  - Haemolysis [Unknown]
  - Blood pressure increased [Unknown]
  - Tremor [Unknown]
  - Drug hypersensitivity [Recovered/Resolved]
  - Haptoglobin decreased [Unknown]
  - Condition aggravated [Unknown]
  - Anxiety [Not Recovered/Not Resolved]

NARRATIVE: CASE EVENT DATE: 20170526
